FAERS Safety Report 21308190 (Version 1)
Quarter: 2022Q3

REPORT INFORMATION
  Report Type: Spontaneous
  Country: US (occurrence: None)
  Receive Date: 20220907
  Receipt Date: 20220907
  Transmission Date: 20221026
  Serious: Yes (Other)
  Sender: FDA-Public Use
  Company Number: None

PATIENT
  Age: 56 Year
  Sex: Female
  Weight: 59.85 kg

DRUGS (37)
  1. METHIMAZOLE [Suspect]
     Active Substance: METHIMAZOLE
     Indication: Hyperthyroidism
     Route: 048
     Dates: start: 20220812, end: 20220906
  2. ALBUTEROL [Concomitant]
     Active Substance: ALBUTEROL
  3. ATENOLOL [Concomitant]
     Active Substance: ATENOLOL
  4. ATORVASTATIN [Concomitant]
     Active Substance: ATORVASTATIN
  5. CYCLOBENZAPRINE [Concomitant]
     Active Substance: CYCLOBENZAPRINE
  6. FAMOTIDINE [Concomitant]
     Active Substance: FAMOTIDINE
  7. FINASTERIDE [Concomitant]
     Active Substance: FINASTERIDE
  8. HYDROXYZINE [Concomitant]
     Active Substance: HYDROXYZINE HYDROCHLORIDE
  9. HYOSCYAMINE [Concomitant]
     Active Substance: HYOSCYAMINE
  10. JARDIANCE [Concomitant]
     Active Substance: EMPAGLIFLOZIN
  11. LEFLUNOMIDE [Concomitant]
     Active Substance: LEFLUNOMIDE
  12. MECLIZINE [Concomitant]
     Active Substance: MECLIZINE HYDROCHLORIDE
  13. METFORMIN [Concomitant]
     Active Substance: METFORMIN HYDROCHLORIDE
  14. ORACEA [Concomitant]
     Active Substance: DOXYCYCLINE
  15. Oxymetazoline/Niacinamide/Azelaic acid [Concomitant]
  16. PREDNISONE [Concomitant]
     Active Substance: PREDNISONE
  17. QVAR [Concomitant]
     Active Substance: BECLOMETHASONE DIPROPIONATE
  18. RESTASIS [Concomitant]
     Active Substance: CYCLOSPORINE
  19. Trerinoin/Niacinamide/hydroquinone/kojic acid [Concomitant]
  20. SPIRONOLACTONE [Concomitant]
     Active Substance: SPIRONOLACTONE
  21. TRAMADOL [Concomitant]
     Active Substance: TRAMADOL
  22. VALACYCLOVIR [Concomitant]
     Active Substance: VALACYCLOVIR HYDROCHLORIDE
  23. ZOLPIDEM [Concomitant]
     Active Substance: ZOLPIDEM TARTRATE
  24. BIOTIN [Concomitant]
     Active Substance: BIOTIN
  25. CALCIUM [Concomitant]
     Active Substance: CALCIUM
  26. COLLAGEN [Concomitant]
     Active Substance: COLLAGEN
  27. FOLATE SODIUM [Concomitant]
     Active Substance: FOLATE SODIUM
  28. IRON [Concomitant]
     Active Substance: IRON
  29. MAGNESIUM [Concomitant]
     Active Substance: MAGNESIUM
  30. VITAMINS [Concomitant]
     Active Substance: VITAMINS
  31. PATADAY [Concomitant]
     Active Substance: OLOPATADINE HYDROCHLORIDE
  32. PRILOSEC [Concomitant]
     Active Substance: OMEPRAZOLE MAGNESIUM
  33. Trunature Probiotic [Concomitant]
  34. METHYLCOBALAMIN [Concomitant]
     Active Substance: METHYLCOBALAMIN
  35. VITAMIN D3 [Concomitant]
     Active Substance: CHOLECALCIFEROL
  36. ZINC [Concomitant]
     Active Substance: ZINC
  37. ZYRTEC [Concomitant]
     Active Substance: CETIRIZINE HYDROCHLORIDE

REACTIONS (4)
  - Swelling face [None]
  - Lip swelling [None]
  - Oropharyngeal pain [None]
  - Urticaria [None]

NARRATIVE: CASE EVENT DATE: 20220906
